FAERS Safety Report 24715315 (Version 1)
Quarter: 2024Q4

REPORT INFORMATION
  Report Type: Spontaneous
  Country: US (occurrence: US)
  Receive Date: 20241210
  Receipt Date: 20241210
  Transmission Date: 20250115
  Serious: No
  Sender: ALEXION PHARMACEUTICALS
  Company Number: US-AstraZeneca-CH-00764567A

PATIENT
  Age: 70 Year
  Weight: 74.376 kg

DRUGS (4)
  1. FASENRA [Suspect]
     Active Substance: BENRALIZUMAB
     Indication: Asthma
     Dosage: UNK UNK, QMONTH
  2. FASENRA [Suspect]
     Active Substance: BENRALIZUMAB
     Dosage: UNK UNK, QMONTH
     Route: 058
  3. FASENRA [Suspect]
     Active Substance: BENRALIZUMAB
     Dosage: UNK UNK, QMONTH
  4. FASENRA [Suspect]
     Active Substance: BENRALIZUMAB
     Dosage: UNK UNK, QMONTH
     Route: 058

REACTIONS (3)
  - Epistaxis [Not Recovered/Not Resolved]
  - Sinusitis [Not Recovered/Not Resolved]
  - Nasopharyngitis [Not Recovered/Not Resolved]
